FAERS Safety Report 9333072 (Version 2)
Quarter: 2013Q2

REPORT INFORMATION
  Report Type: Spontaneous
  Country: BR (occurrence: BR)
  Receive Date: 20130606
  Receipt Date: 20130619
  Transmission Date: 20140414
  Serious: Yes (Other)
  Sender: FDA-Public Use
  Company Number: BR-PFIZER INC-2013171301

PATIENT
  Age: 43 Year
  Sex: Female

DRUGS (2)
  1. NORVASC [Suspect]
     Dosage: 30 MG, UNK
     Route: 048
     Dates: start: 2006, end: 2010
  2. BROMAZEPAM [Concomitant]
     Indication: ANXIETY
     Dosage: UNK
     Dates: start: 2009

REACTIONS (4)
  - Hyperthyroidism [Unknown]
  - Thyroid neoplasm [Unknown]
  - Off label use [Unknown]
  - Local swelling [Unknown]
